FAERS Safety Report 7156229-5 (Version None)
Quarter: 2010Q4

REPORT INFORMATION
  Report Type: 
  Country: None (occurrence: None)
  Receive Date: 20101214
  Receipt Date: 20101207
  Transmission Date: 20110411
  Serious: Yes (Other)
  Sender: FDA-Public Use
  Company Number: US-JNJFOC-20101204045

PATIENT
  Sex: Female

DRUGS (1)
  1. LEVAQUIN [Suspect]
     Indication: SINUSITIS
     Route: 048

REACTIONS (6)
  - DYSPHAGIA [None]
  - DYSPNOEA [None]
  - INSOMNIA [None]
  - SINUSITIS [None]
  - SWOLLEN TONGUE [None]
  - TONGUE DISORDER [None]
